FAERS Safety Report 21761383 (Version 1)
Quarter: 2022Q4

REPORT INFORMATION
  Report Type: Spontaneous
  Country: FR (occurrence: FR)
  Receive Date: 20221221
  Receipt Date: 20221221
  Transmission Date: 20230113
  Serious: Yes (Hospitalization)
  Sender: FDA-Public Use
  Company Number: None

PATIENT
  Age: 35 Year
  Sex: Male
  Weight: 80 kg

DRUGS (3)
  1. ESCITALOPRAM [Suspect]
     Active Substance: ESCITALOPRAM OXALATE
     Indication: Depression
     Dosage: UNIT DOSE : 1 DOSAGE FORMS, FREQUENCY TIME : 1 DAYS, DURATION : 7 YEARS
     Route: 065
     Dates: start: 2015, end: 20221107
  2. LEVOMEPROMAZINE [Suspect]
     Active Substance: LEVOMEPROMAZINE
     Indication: Depression
     Dosage: FORM STRENGTH : 25 MG, UNIT DOSE : 1 DOSAGE FORMS, FREQUENCY TIME : 1 DAYS, DURATION : 1 YEAR
     Route: 065
     Dates: start: 202101, end: 20221107
  3. QUETIAPINE FUMARATE [Suspect]
     Active Substance: QUETIAPINE FUMARATE
     Indication: Depression
     Dosage: FORM STRENGTH : 300 MG, UNIT DOSE : 1 DOSAGE FORMS, FREQUENCY TIME : 1 DAYS, DURATION : 7 YEARS
     Route: 065
     Dates: start: 2015, end: 20221107

REACTIONS (1)
  - Ischaemic stroke [Recovered/Resolved]

NARRATIVE: CASE EVENT DATE: 20221107
